FAERS Safety Report 18518417 (Version 1)
Quarter: 2020Q4

REPORT INFORMATION
  Report Type: Other
  Country: US (occurrence: US)
  Receive Date: 20201118
  Receipt Date: 20201118
  Transmission Date: 20210114
  Serious: Yes (Other)
  Sender: FDA-Public Use
  Company Number: US-AMNEAL PHARMACEUTICALS-2020-AMRX-03498

PATIENT

DRUGS (1)
  1. METFORMIN HYDROCHLORIDE. [Suspect]
     Active Substance: METFORMIN HYDROCHLORIDE
     Indication: PRODUCT USED FOR UNKNOWN INDICATION
     Dosage: UNK
     Route: 065
     Dates: end: 202006

REACTIONS (12)
  - Renal artery stenosis [Unknown]
  - Buttock injury [Unknown]
  - Joint injury [Unknown]
  - Muscle spasms [Unknown]
  - Complex regional pain syndrome [Unknown]
  - Alopecia [Unknown]
  - Condition aggravated [Unknown]
  - Parkinson^s disease [Unknown]
  - Gastric disorder [Unknown]
  - Spinal cord injury [Unknown]
  - Fall [Unknown]
  - Limb injury [Unknown]

NARRATIVE: CASE EVENT DATE: 201911
